FAERS Safety Report 18930119 (Version 4)
Quarter: 2022Q2

REPORT INFORMATION
  Report Type: Spontaneous
  Country: US (occurrence: US)
  Receive Date: 20210223
  Receipt Date: 20220418
  Transmission Date: 20220721
  Serious: No
  Sender: FDA-Public Use
  Company Number: US-UCBSA-2021006397

PATIENT
  Sex: Male

DRUGS (1)
  1. NEUPRO [Suspect]
     Active Substance: ROTIGOTINE
     Indication: Parkinson^s disease
     Dosage: 8 MILLIGRAM, UNK

REACTIONS (4)
  - Product adhesion issue [Unknown]
  - Incorrect dose administered [Unknown]
  - Product availability issue [Unknown]
  - Therapy interrupted [Unknown]
